FAERS Safety Report 15294307 (Version 2)
Quarter: 2018Q3

REPORT INFORMATION
  Report Type: Spontaneous
  Country: GB (occurrence: GB)
  Receive Date: 20180820
  Receipt Date: 20180920
  Transmission Date: 20181010
  Serious: Yes (Other)
  Sender: FDA-Public Use
  Company Number: GB-BAUSCH-BL-2018-021586

PATIENT
  Age: 27 Year
  Sex: Male

DRUGS (7)
  1. PRISTINAMYCIN [Suspect]
     Active Substance: PRISTINAMYCIN
     Dosage: UNK
     Route: 065
  2. AZITHROMYCIN ANHYDROUS. [Suspect]
     Active Substance: AZITHROMYCIN ANHYDROUS
     Dosage: 250 MG, QD (4 DAYS)
     Route: 065
  3. DOXYCYCLINE. [Suspect]
     Active Substance: DOXYCYCLINE
     Indication: URETHRITIS CHLAMYDIAL
     Route: 065
  4. AZITHROMYCIN ANHYDROUS. [Suspect]
     Active Substance: AZITHROMYCIN ANHYDROUS
     Dosage: 500 OT, UNK
     Route: 065
  5. PRISTINAMYCIN [Suspect]
     Active Substance: PRISTINAMYCIN
     Indication: MYCOPLASMA GENITALIUM INFECTION
     Dosage: 1 G, QD
     Route: 065
  6. AZITHROMYCIN ANHYDROUS. [Suspect]
     Active Substance: AZITHROMYCIN ANHYDROUS
     Indication: MYCOPLASMA GENITALIUM INFECTION
     Route: 065
  7. MOXIFLOXACIN. [Suspect]
     Active Substance: MOXIFLOXACIN
     Indication: MYCOPLASMA GENITALIUM INFECTION
     Route: 065
     Dates: start: 201802

REACTIONS (6)
  - Pain in extremity [Unknown]
  - Urethritis mycoplasmal [Recovered/Resolved]
  - Condition aggravated [Recovered/Resolved]
  - Urinary tract infection [Recovered/Resolved]
  - Malaise [Unknown]
  - Arthralgia [Unknown]

NARRATIVE: CASE EVENT DATE: 201802
